FAERS Safety Report 16559687 (Version 1)
Quarter: 2019Q3

REPORT INFORMATION
  Report Type: Spontaneous
  Country: DE (occurrence: DE)
  Receive Date: 20190711
  Receipt Date: 20190711
  Transmission Date: 20191004
  Serious: Yes (Hospitalization)
  Sender: FDA-Public Use
  Company Number: DE-SA-2019SA183738

PATIENT
  Age: 61 Year
  Sex: Female
  Weight: 60 kg

DRUGS (9)
  1. TORASEMID [Concomitant]
     Active Substance: TORSEMIDE
     Dosage: 20 MG, QD (1-0-0-0) TABLET
     Route: 048
  2. SPIRIVA [Concomitant]
     Active Substance: TIOTROPIUM BROMIDE MONOHYDRATE
     Dosage: 18 UG, QD (1-0-0-0)
     Route: 048
  3. EISEN [IRON] [Concomitant]
     Dosage: UNK UNK, QD 1-0-0-0, TABLET
     Route: 048
  4. L-THYROXIN [LEVOTHYROXINE SODIUM] [Concomitant]
     Dosage: 50 UG, QD 1-0-0-0, TABLET
     Route: 048
  5. METOPROLOL. [Concomitant]
     Active Substance: METOPROLOL
     Dosage: 47.5 MG, 0.5-0-0.5-0, TABLET
     Route: 048
  6. CLOPIDOGREL BISULFATE. [Suspect]
     Active Substance: CLOPIDOGREL BISULFATE
     Indication: PRODUCT USED FOR UNKNOWN INDICATION
     Dosage: 75 MG, QD (1-0-0-0) TABLET
     Route: 048
  7. RIVAROXABAN [Suspect]
     Active Substance: RIVAROXABAN
     Indication: PRODUCT USED FOR UNKNOWN INDICATION
     Dosage: 15 MG, QD 1-0-0-0, TABLET
     Route: 048
  8. PANTOPRAZOL [PANTOPRAZOLE] [Concomitant]
     Active Substance: PANTOPRAZOLE
     Dosage: 40 MG, QD (1-0-0-0) TABLET
     Route: 048
  9. ATORVASTATIN;EZETIMIBE [Concomitant]
     Active Substance: ATORVASTATIN\EZETIMIBE
     Dosage: 20|10 MG, 0-0-1-0, TABLET
     Route: 048

REACTIONS (4)
  - Dyspnoea [Unknown]
  - Pallor [Unknown]
  - General physical health deterioration [Unknown]
  - Musculoskeletal pain [Unknown]
